FAERS Safety Report 6044121-9 (Version None)
Quarter: 2009Q1

REPORT INFORMATION
  Report Type: 
  Country: None (occurrence: None)
  Receive Date: 20090120
  Receipt Date: 20090108
  Transmission Date: 20090719
  Serious: Yes (Other)
  Sender: FDA-Public Use
  Company Number: CH-ASTRAZENECA-2009PK00354

PATIENT
  Age: 87 Year
  Sex: Female
  Weight: 44.3 kg

DRUGS (11)
  1. NEXIUM [Suspect]
     Route: 048
     Dates: start: 20080926, end: 20081020
  2. BELOC ZOK [Suspect]
     Route: 048
     Dates: start: 20080101
  3. ENALAPRIL MALEATE [Suspect]
     Route: 048
     Dates: start: 20070101, end: 20081021
  4. TORASIS [Suspect]
     Route: 048
     Dates: start: 20070101, end: 20081021
  5. ASPIRIN [Suspect]
     Route: 048
     Dates: start: 20070101
  6. ZOLPIDEM [Suspect]
     Route: 048
     Dates: start: 20081012
  7. CITALOPRAM [Suspect]
     Route: 048
     Dates: start: 20070101, end: 20081024
  8. PREDNISONE [Concomitant]
     Route: 048
     Dates: start: 20081024
  9. RECORMON [Concomitant]
     Route: 058
     Dates: start: 20080101
  10. EUTHYROX [Concomitant]
     Route: 048
     Dates: start: 20080101
  11. SPERSACARPINE [Concomitant]
     Dates: start: 20080919

REACTIONS (1)
  - HEPATOCELLULAR INJURY [None]
